FAERS Safety Report 4778194-8 (Version None)
Quarter: 2005Q3

REPORT INFORMATION
  Report Type: 
  Country: None (occurrence: None)
  Receive Date: 20050922
  Receipt Date: 20050907
  Transmission Date: 20060218
  Serious: Yes (Hospitalization)
  Sender: FDA-Public Use
  Company Number: 2005BI017354

PATIENT
  Age: 44 Year
  Sex: Male
  Weight: 74.8435 kg

DRUGS (1)
  1. AVONEX [Suspect]
     Indication: MULTIPLE SCLEROSIS
     Dosage: 30 UG;QW;IM
     Route: 030
     Dates: start: 20000101

REACTIONS (4)
  - DISEASE PROGRESSION [None]
  - LIMB INJURY [None]
  - MULTIPLE SCLEROSIS [None]
  - SPINAL FRACTURE [None]
